FAERS Safety Report 20480124 (Version 1)
Quarter: 2022Q1

REPORT INFORMATION
  Report Type: Spontaneous
  Country: US (occurrence: None)
  Receive Date: 20220215
  Receipt Date: 20220215
  Transmission Date: 20220424
  Serious: Yes (unspecified)
  Sender: FDA-Public Use
  Company Number: None

PATIENT
  Age: 60 Year
  Sex: Female
  Weight: 101 kg

DRUGS (2)
  1. TAXOL [Suspect]
     Active Substance: PACLITAXEL
     Indication: Thyroid cancer
     Dosage: OTHER FREQUENCY : ONE TIME INFUSION;?
     Route: 041
     Dates: start: 20220202, end: 20220202
  2. Hydrocortisone 100 mg IVP [Concomitant]
     Dates: start: 20220202, end: 20220202

REACTIONS (7)
  - Decreased appetite [None]
  - Diarrhoea [None]
  - Fatigue [None]
  - Nausea [None]
  - Flushing [None]
  - Ocular hyperaemia [None]
  - Swelling face [None]

NARRATIVE: CASE EVENT DATE: 20220202
